FAERS Safety Report 9802375 (Version 3)
Quarter: 2014Q1

REPORT INFORMATION
  Report Type: Spontaneous
  Country: US (occurrence: US)
  Receive Date: 20140107
  Receipt Date: 20140203
  Transmission Date: 20141002
  Serious: Yes (Death, Hospitalization, Other)
  Sender: FDA-Public Use
  Company Number: US-BAXTER-2013BAX053690

PATIENT
  Sex: Male

DRUGS (2)
  1. DIANEAL LOW CALCIUM [Suspect]
     Indication: RENAL FAILURE CHRONIC
     Dosage: 2 BAGS
     Route: 033
     Dates: start: 201305, end: 20131228
  2. DIANEAL LOW CALCIUM [Suspect]
     Indication: PERITONEAL DIALYSIS

REACTIONS (3)
  - Cardiac arrest [Fatal]
  - Myocardial infarction [Unknown]
  - Atrial flutter [Unknown]
